FAERS Safety Report 9005985 (Version 1)
Quarter: 2013Q1

REPORT INFORMATION
  Report Type: Spontaneous
  Country: US (occurrence: US)
  Receive Date: 20130109
  Receipt Date: 20130109
  Transmission Date: 20140127
  Serious: Yes (Other)
  Sender: FDA-Public Use
  Company Number: US-PFIZER INC-2013007716

PATIENT
  Age: 61 Year
  Sex: Female
  Weight: 86.62 kg

DRUGS (4)
  1. CHANTIX [Suspect]
     Indication: SMOKING CESSATION THERAPY
     Dosage: 0.5 MG, 1X/DAY
     Route: 048
  2. CHANTIX [Suspect]
     Dosage: UNK
     Route: 048
  3. HYDROMORPHONE [Concomitant]
     Indication: PAIN
     Dosage: UNK
  4. DIAZEPAM [Concomitant]
     Dosage: UNK

REACTIONS (1)
  - Back disorder [Unknown]
